FAERS Safety Report 22360734 (Version 1)
Quarter: 2023Q2

REPORT INFORMATION
  Report Type: Spontaneous
  Country: US (occurrence: US)
  Receive Date: 20230524
  Receipt Date: 20230524
  Transmission Date: 20230722
  Serious: No
  Sender: FDA-Public Use
  Company Number: US-drreddys-LIT/USA/23/0164684

PATIENT
  Age: 76 Year
  Sex: Female

DRUGS (6)
  1. LIDOCAINE [Suspect]
     Active Substance: LIDOCAINE
     Indication: Pain
     Route: 061
  2. ACETAMINOPHEN [Suspect]
     Active Substance: ACETAMINOPHEN
     Indication: Pain
  3. GABAPENTIN [Suspect]
     Active Substance: GABAPENTIN
     Indication: Pain
     Route: 048
  4. GABAPENTIN [Suspect]
     Active Substance: GABAPENTIN
     Route: 061
  5. LIDOCAINE [Suspect]
     Active Substance: LIDOCAINE
     Indication: Pain
     Route: 062
  6. OXYCODONE [Suspect]
     Active Substance: OXYCODONE
     Indication: Pain

REACTIONS (1)
  - Drug ineffective [Unknown]
